FAERS Safety Report 9188251 (Version 2)
Quarter: 2013Q2

REPORT INFORMATION
  Report Type: Spontaneous
  Country: BO (occurrence: BO)
  Receive Date: 20130325
  Receipt Date: 20130415
  Transmission Date: 20140414
  Serious: Yes (Hospitalization)
  Sender: FDA-Public Use
  Company Number: BO-BAYER-2013-036055

PATIENT
  Age: 57 Year
  Sex: Female

DRUGS (1)
  1. ULTRAVIST [Suspect]
     Indication: COMPUTERISED TOMOGRAM ABDOMEN
     Dosage: 20ML DILUTED IN 1L OF WATER
     Route: 048
     Dates: start: 20130320, end: 20130320

REACTIONS (3)
  - Paraplegia [None]
  - Nausea [None]
  - Incorrect route of drug administration [Recovered/Resolved]
